FAERS Safety Report 5937791-4 (Version None)
Quarter: 2008Q4

REPORT INFORMATION
  Report Type: 
  Country: None (occurrence: None)
  Receive Date: 20081031
  Receipt Date: 20081022
  Transmission Date: 20090506
  Serious: Yes (Hospitalization)
  Sender: FDA-Public Use
  Company Number: US-JNJFOC-20080703542

PATIENT
  Sex: Male

DRUGS (10)
  1. INFLIXIMAB [Suspect]
     Route: 042
  2. INFLIXIMAB [Suspect]
     Indication: CROHN'S DISEASE
     Route: 042
  3. PENTASA [Concomitant]
     Route: 048
  4. PREDNISONE [Concomitant]
     Route: 048
  5. ANTIBIOTICS [Concomitant]
     Indication: CROHN'S DISEASE
  6. MULTI-VITAMINS [Concomitant]
  7. FERROUS SULFATE [Concomitant]
  8. MORPHINE [Concomitant]
  9. PERIACTIN [Concomitant]
  10. MEROPENEM [Concomitant]
     Route: 042

REACTIONS (3)
  - CROHN'S DISEASE [None]
  - ENTEROVESICAL FISTULA [None]
  - PELVIC ABSCESS [None]
